FAERS Safety Report 8954435 (Version 1)
Quarter: 2012Q4

REPORT INFORMATION
  Report Type: 
  Country: DE (occurrence: DE)
  Receive Date: 20121210
  Receipt Date: 20121210
  Transmission Date: 20130627
  Serious: Yes (Hospitalization)
  Sender: FDA-Public Use
  Company Number: DE-AMGEN-DEUSP2012078744

PATIENT
  Age: 55 Year
  Sex: Female

DRUGS (5)
  1. ENBREL [Suspect]
     Indication: PRODUCT USED FOR UNKNOWN INDICATION
     Dosage: 50 mg, once weekly
     Route: 065
  2. CORTISONE [Concomitant]
     Dosage: UNK
  3. HYDROCHLOROTHIAZIDE/METOPROLOL [Concomitant]
     Indication: HYPERTENSION
     Dosage: UNK
  4. PRETERAX [Concomitant]
     Dosage: UNK
  5. ELTROXIN [Concomitant]
     Dosage: UNK

REACTIONS (3)
  - Motor dysfunction [Unknown]
  - Nausea [Unknown]
  - Headache [Unknown]
